FAERS Safety Report 6540059-9 (Version None)
Quarter: 2010Q1

REPORT INFORMATION
  Report Type: 
  Country: None (occurrence: None)
  Receive Date: 20100115
  Receipt Date: 20100106
  Transmission Date: 20100710
  Serious: Yes (Hospitalization)
  Sender: FDA-Public Use
  Company Number: US-BRISTOL-MYERS SQUIBB COMPANY-14880439

PATIENT
  Age: 65 Year
  Sex: Female

DRUGS (19)
  1. APIXABAN [Suspect]
     Indication: THROMBOSIS PROPHYLAXIS
     Dosage: 2 DF - 2TABS INTERRUPTED 14NOV09 TO 18NOV09
     Route: 048
     Dates: start: 20090323, end: 20091124
  2. WARFARIN SODIUM [Suspect]
     Indication: THROMBOSIS PROPHYLAXIS
     Dosage: 4 MG DAILY EXCEPT 6 MG ON FRIDAY INTERRUPTED 14NOV09 TO 18NOV09
     Route: 048
     Dates: start: 20090323, end: 20091124
  3. PLACEBO [Suspect]
     Indication: THROMBOSIS PROPHYLAXIS
     Dosage: INTERRUPTED 14NOV09 TO 18NOV09
     Route: 048
     Dates: start: 20090323, end: 20091124
  4. ATENOLOL [Concomitant]
     Route: 048
  5. NORVASC [Concomitant]
     Route: 048
  6. ZOCOR [Concomitant]
     Route: 048
  7. LYRICA [Concomitant]
     Route: 048
  8. LEVOTHYROXINE SODIUM [Concomitant]
  9. LISINOPRIL [Concomitant]
     Dosage: 1 DF = 20/25
     Route: 048
  10. POTASSIUM [Concomitant]
  11. PREVACID [Concomitant]
  12. VITAMIN B-12 [Concomitant]
     Route: 048
  13. METFORMIN [Concomitant]
     Route: 048
  14. AMBIEN [Concomitant]
  15. COUMADIN [Concomitant]
  16. HYDROCHLOROTHIAZIDE [Concomitant]
  17. METRONIDAZOLE [Concomitant]
  18. METRONIDAZOLE [Concomitant]
  19. LEVOFLOXACIN [Concomitant]

REACTIONS (2)
  - DEEP VEIN THROMBOSIS [None]
  - LARGE INTESTINAL ULCER [None]
